FAERS Safety Report 5462431-0 (Version None)
Quarter: 2007Q3

REPORT INFORMATION
  Report Type: 
  Country: None (occurrence: None)
  Receive Date: 20070814
  Receipt Date: 20050927
  Transmission Date: 20080115
  Serious: Yes (Hospitalization)
  Sender: FDA-Public Use
  Company Number: SP00501

PATIENT
  Age: 35 Year
  Sex: Female
  Weight: 62.1428 kg

DRUGS (6)
  1. COLAZAL [Suspect]
     Indication: COLITIS ULCERATIVE
     Dosage: 2.25G/TID,ORAL
     Route: 048
     Dates: start: 20050301, end: 20050920
  2. COLAZAL [Suspect]
     Indication: CROHN'S DISEASE
     Dosage: 2.25G/TID,ORAL
     Route: 048
     Dates: start: 20050301, end: 20050920
  3. AZASAN [Suspect]
     Indication: COLITIS ULCERATIVE
     Dosage: ORAL
     Route: 048
     Dates: end: 20050827
  4. AZASAN [Suspect]
     Indication: CROHN'S DISEASE
     Dosage: ORAL
     Route: 048
     Dates: end: 20050827
  5. PENTASA [Concomitant]
  6. REMICADE [Concomitant]

REACTIONS (1)
  - PANCREATITIS [None]
